FAERS Safety Report 23531399 (Version 1)
Quarter: 2024Q1

REPORT INFORMATION
  Report Type: Spontaneous
  Country: US (occurrence: None)
  Receive Date: 20240215
  Receipt Date: 20240215
  Transmission Date: 20240410
  Serious: Yes (Hospitalization)
  Sender: FDA-Public Use
  Company Number: None

PATIENT
  Sex: Male

DRUGS (1)
  1. CYCLOSPORINE MODIFIED [Suspect]
     Active Substance: CYCLOSPORINE
     Indication: Liver transplant
     Dosage: OTHER QUANTITY : 3 CAP AM 2 CAP PM;?FREQUENCY : AS DIRECTED;?
     Route: 048
     Dates: start: 20190907

REACTIONS (1)
  - Haemoglobin decreased [None]
